FAERS Safety Report 25462606 (Version 2)
Quarter: 2025Q2

REPORT INFORMATION
  Report Type: Spontaneous
  Country: US (occurrence: US)
  Receive Date: 20250620
  Receipt Date: 20250623
  Transmission Date: 20250716
  Serious: No
  Sender: PFIZER
  Company Number: US-PFIZER INC-202500124488

PATIENT
  Sex: Female
  Weight: 72.57 kg

DRUGS (5)
  1. PAXLOVID [Suspect]
     Active Substance: NIRMATRELVIR\RITONAVIR
     Indication: COVID-19 treatment
     Dates: start: 202308
  2. PAXLOVID [Suspect]
     Active Substance: NIRMATRELVIR\RITONAVIR
  3. ACTEMRA [Concomitant]
     Active Substance: TOCILIZUMAB
     Dosage: 500 MG, MONTHLY
  4. HYDROCHLOROTHIAZIDE [Concomitant]
     Active Substance: HYDROCHLOROTHIAZIDE
  5. PREDNISONE [Concomitant]
     Active Substance: PREDNISONE
     Dosage: 1 MG, 3X/DAY

REACTIONS (1)
  - Dysgeusia [Unknown]
